FAERS Safety Report 12270633 (Version 1)
Quarter: 2016Q2

REPORT INFORMATION
  Report Type: Spontaneous
  Country: US (occurrence: US)
  Receive Date: 20160415
  Receipt Date: 20160415
  Transmission Date: 20160815
  Serious: No
  Sender: FDA-Public Use
  Company Number: US-PFIZER INC-2016169183

PATIENT
  Age: 77 Year
  Sex: Female
  Weight: 66 kg

DRUGS (6)
  1. LYRICA [Suspect]
     Active Substance: PREGABALIN
     Dosage: 150 UNK, UNK
     Dates: start: 20160315
  2. GABAPENTIN. [Concomitant]
     Active Substance: GABAPENTIN
     Indication: PAIN
     Dosage: UNK, AS NEEDED
  3. ALLOPURINOL. [Concomitant]
     Active Substance: ALLOPURINOL
     Indication: PAIN
     Dosage: 300MG TABLET BY MOUTH DAILY
     Route: 048
  4. ALLOPURINOL. [Concomitant]
     Active Substance: ALLOPURINOL
     Indication: GOUT
  5. GABAPENTIN. [Concomitant]
     Active Substance: GABAPENTIN
     Indication: SWEAT GLAND DISORDER
     Dosage: 300MG CAPSULE BY MOUTH THREE TIMES A DAY
     Route: 048
  6. LYRICA [Suspect]
     Active Substance: PREGABALIN
     Indication: HOT FLUSH
     Dosage: 75MG TWO CAPSULES BY MOUTH IN THE MORNING AND TWO CAPSULES IN THE EVENING
     Route: 048
     Dates: start: 20160309, end: 20160314

REACTIONS (9)
  - Intentional product misuse [Unknown]
  - Pain in extremity [Recovering/Resolving]
  - Fatigue [Recovering/Resolving]
  - Drug ineffective for unapproved indication [Unknown]
  - Drug dose omission [Unknown]
  - Malaise [Unknown]
  - Insomnia [Recovering/Resolving]
  - Gait disturbance [Recovering/Resolving]
  - Pain [Not Recovered/Not Resolved]

NARRATIVE: CASE EVENT DATE: 20160315
